FAERS Safety Report 18358289 (Version 1)
Quarter: 2020Q4

REPORT INFORMATION
  Report Type: Spontaneous
  Country: GB (occurrence: GB)
  Receive Date: 20201007
  Receipt Date: 20201007
  Transmission Date: 20210114
  Serious: Yes (Other)
  Sender: FDA-Public Use
  Company Number: GB-ABBVIE-20K-167-3592903-00

PATIENT
  Sex: Female

DRUGS (1)
  1. HUMIRA [Suspect]
     Active Substance: ADALIMUMAB
     Indication: PSORIATIC ARTHROPATHY
     Route: 058
     Dates: start: 201902, end: 202002

REACTIONS (4)
  - Drug ineffective [Unknown]
  - Lymphadenopathy [Recovering/Resolving]
  - Interstitial lung disease [Recovering/Resolving]
  - Therapeutic response unexpected [Unknown]
